FAERS Safety Report 8341468-8 (Version None)
Quarter: 2012Q2

REPORT INFORMATION
  Report Type: 
  Country: None (occurrence: None)
  Receive Date: 20120507
  Receipt Date: 20120427
  Transmission Date: 20120825
  Serious: Yes (Hospitalization)
  Sender: FDA-Public Use
  Company Number: US-MERCK-1201USA00756

PATIENT
  Age: 68 Year
  Sex: Female

DRUGS (5)
  1. FOSAMAX [Suspect]
     Indication: OSTEOPOROSIS
     Route: 048
     Dates: start: 19990505, end: 20101001
  2. BONIVA [Suspect]
     Route: 065
     Dates: start: 19990101, end: 20101001
  3. FOSAMAX [Suspect]
     Route: 048
     Dates: end: 20101001
  4. ALLEGRA [Concomitant]
     Indication: SEASONAL ALLERGY
     Route: 065
  5. ACTONEL [Suspect]
     Route: 065
     Dates: start: 19990101, end: 20101001

REACTIONS (5)
  - FOOT DEFORMITY [None]
  - HYPERTENSION [None]
  - ADVERSE EVENT [None]
  - FEMUR FRACTURE [None]
  - BLOOD CHOLESTEROL INCREASED [None]
